FAERS Safety Report 5275371-7 (Version None)
Quarter: 2007Q1

REPORT INFORMATION
  Report Type: 
  Country: None (occurrence: None)
  Receive Date: 20070322
  Receipt Date: 20070322
  Transmission Date: 20070707
  Serious: Yes (Other)
  Sender: FDA-Public Use
  Company Number: None

PATIENT
  Sex: Female

DRUGS (1)
  1. BUPROPION HYDROCHLORIDE [Suspect]
     Dosage: 150 MG 1 Q AM PO
     Route: 048
     Dates: start: 20070130, end: 20070213

REACTIONS (12)
  - AFFECT LABILITY [None]
  - AGITATION [None]
  - ANXIETY [None]
  - DIZZINESS [None]
  - DRUG INEFFECTIVE [None]
  - IMPULSIVE BEHAVIOUR [None]
  - INSOMNIA [None]
  - NERVOUSNESS [None]
  - NIGHTMARE [None]
  - PALPITATIONS [None]
  - PANIC ATTACK [None]
  - TREMOR [None]
